FAERS Safety Report 7702128-7 (Version None)
Quarter: 2011Q3

REPORT INFORMATION
  Report Type: 
  Country: None (occurrence: None)
  Receive Date: 20110822
  Receipt Date: 20110810
  Transmission Date: 20111222
  Serious: Yes (Hospitalization, Disabling)
  Sender: FDA-Public Use
  Company Number: BR-US-EMD SERONO, INC.-7070561

PATIENT
  Sex: Female

DRUGS (9)
  1. AMITRIPTYLINE HCL [Concomitant]
  2. REBIF [Suspect]
     Indication: RELAPSING-REMITTING MULTIPLE SCLEROSIS
     Route: 058
     Dates: start: 20030421
  3. BACLOFEN [Concomitant]
  4. AZATHIOPRINE [Concomitant]
  5. PANTOPRAZOLE [Concomitant]
  6. FLUOXETINE [Concomitant]
  7. IMOSEC [Concomitant]
  8. NIMESULIDE [Concomitant]
  9. LIPITOR [Concomitant]

REACTIONS (5)
  - MUSCLE SPASMS [None]
  - HYPOKINESIA [None]
  - IRRITABILITY [None]
  - TEARFULNESS [None]
  - INSOMNIA [None]
